FAERS Safety Report 5309833-0 (Version None)
Quarter: 2007Q2

REPORT INFORMATION
  Report Type: 
  Country: None (occurrence: None)
  Receive Date: 20070427
  Receipt Date: 20070419
  Transmission Date: 20071010
  Serious: Yes (Hospitalization)
  Sender: FDA-Public Use
  Company Number: US-AMGEN-STX218103

PATIENT
  Sex: Female
  Weight: 57.7 kg

DRUGS (1)
  1. ENBREL [Suspect]
     Indication: RHEUMATOID ARTHRITIS
     Route: 058
     Dates: start: 20000901

REACTIONS (3)
  - RHEUMATOID ARTHRITIS [None]
  - SPINAL FUSION SURGERY [None]
  - SPINAL LAMINECTOMY [None]
